FAERS Safety Report 12606374 (Version 2)
Quarter: 2016Q3

REPORT INFORMATION
  Report Type: Spontaneous
  Country: MD (occurrence: MD)
  Receive Date: 20160729
  Receipt Date: 20160802
  Transmission Date: 20161109
  Serious: Yes (Hospitalization)
  Sender: FDA-Public Use
  Company Number: MD-GE HEALTHCARE MEDICAL DIAGNOSTICS-OMPQ-PR-1607S-1281

PATIENT
  Age: 61 Year
  Sex: Male
  Weight: 65 kg

DRUGS (6)
  1. OMNIPAQUE [Suspect]
     Active Substance: IOHEXOL
     Indication: CARDIOVASCULAR DISORDER
     Route: 042
     Dates: start: 20160316, end: 20160316
  2. DEXAMETHASONE. [Suspect]
     Active Substance: DEXAMETHASONE
     Indication: IMMUNE TOLERANCE INDUCTION
     Route: 042
     Dates: start: 20160316, end: 20160316
  3. SODIUM CHLORIDE. [Suspect]
     Active Substance: SODIUM CHLORIDE
     Indication: ADJUVANT THERAPY
     Route: 042
     Dates: start: 20160316, end: 20160316
  4. OMNIPAQUE [Suspect]
     Active Substance: IOHEXOL
     Indication: DIAGNOSTIC PROCEDURE
  5. OMNIPAQUE [Suspect]
     Active Substance: IOHEXOL
     Indication: HAEMORRHAGIC STROKE
  6. OMNIPAQUE [Suspect]
     Active Substance: IOHEXOL
     Indication: COGNITIVE DISORDER

REACTIONS (4)
  - Cyanosis [Recovered/Resolved]
  - Tremor [Recovered/Resolved]
  - Agitation [Recovered/Resolved]
  - Hypotension [Recovered/Resolved]

NARRATIVE: CASE EVENT DATE: 20160316
